FAERS Safety Report 5676032-2 (Version None)
Quarter: 2008Q1

REPORT INFORMATION
  Report Type: 
  Country: None (occurrence: None)
  Receive Date: 20080321
  Receipt Date: 20080312
  Transmission Date: 20080703
  Serious: Yes (Disabling)
  Sender: FDA-Public Use
  Company Number: NL-SANOFI-SYNTHELABO-A01200802928

PATIENT
  Sex: Male
  Weight: 79 kg

DRUGS (2)
  1. XATRAL XR [Suspect]
     Indication: BENIGN PROSTATIC HYPERPLASIA
     Route: 048
     Dates: start: 20080214, end: 20080215
  2. AVODART [Suspect]
     Indication: BENIGN PROSTATIC HYPERPLASIA
     Route: 048
     Dates: start: 20080221, end: 20080222

REACTIONS (3)
  - ARTHROPATHY [None]
  - GAIT DISTURBANCE [None]
  - MUSCLE DISORDER [None]
